FAERS Safety Report 14601013 (Version 1)
Quarter: 2018Q1

REPORT INFORMATION
  Report Type: Spontaneous
  Country: US (occurrence: US)
  Receive Date: 20180305
  Receipt Date: 20180305
  Transmission Date: 20180509
  Serious: No
  Sender: FDA-Public Use
  Company Number: US-LEXICON PHARMACEUTICALS, INC-18-1606-00181

PATIENT
  Sex: Male

DRUGS (1)
  1. TELOTRISTAT ETHYL [Suspect]
     Active Substance: TELOTRISTAT ETHYL
     Indication: CARCINOID SYNDROME
     Route: 048

REACTIONS (6)
  - Pancreastatin increased [Unknown]
  - Serum serotonin increased [Unknown]
  - Haematocrit decreased [Unknown]
  - Blood chromogranin A increased [Unknown]
  - Haemoglobin decreased [Unknown]
  - 5-hydroxyindolacetic acid increased [Unknown]
